FAERS Safety Report 4377640-1 (Version None)
Quarter: 2004Q2

REPORT INFORMATION
  Report Type: 
  Country: None (occurrence: None)
  Receive Date: 20040615
  Receipt Date: 20040527
  Transmission Date: 20050107
  Serious: Yes (Other)
  Sender: FDA-Public Use
  Company Number: PHEH2004US05901

PATIENT
  Age: 41 Year
  Sex: Female

DRUGS (4)
  1. ZELNORM [Suspect]
     Indication: IRRITABLE BOWEL SYNDROME
     Dosage: 6 MG, BID
     Route: 048
     Dates: start: 20040101, end: 20040518
  2. ZELNORM [Suspect]
     Dates: start: 20040522, end: 20040523
  3. XANAX [Concomitant]
  4. WYGESIC [Concomitant]

REACTIONS (2)
  - ABDOMINAL PAIN UPPER [None]
  - RECTAL HAEMORRHAGE [None]
